FAERS Safety Report 7441663-6 (Version None)
Quarter: 2011Q2

REPORT INFORMATION
  Report Type: 
  Country: None (occurrence: None)
  Receive Date: 20110428
  Receipt Date: 20110418
  Transmission Date: 20111010
  Serious: Yes (Other)
  Sender: FDA-Public Use
  Company Number: DK-SANOFI-AVENTIS-2011SA024191

PATIENT

DRUGS (6)
  1. OXALIPLATIN [Suspect]
     Dosage: DAY 1 AND 14 OF 28 DAY CYCLE
     Route: 042
  2. GEMCITABINE HYDROCHLORIDE [Suspect]
     Dosage: DAY 1 AND DAY 14OF 28 DAY CYCLE
     Route: 042
  3. GEMCITABINE HYDROCHLORIDE [Suspect]
     Dosage: DAY 1 AND DAY 14 OF 28 DAY CYCLE.
     Route: 042
  4. CAPECITABINE [Suspect]
     Dosage: DAY 1-7 AND DAY 14-21 OF 28 DAY CYCLE.
     Route: 048
  5. OXALIPLATIN [Suspect]
     Dosage: DAY 1 AND DAY 14 OF 28 DAY CYCLE.
     Route: 042
  6. CAPECITABINE [Suspect]
     Dosage: DAY 1-7 AND DAY 14-21 OF 28 DAYS CYCLE
     Route: 048

REACTIONS (13)
  - INFECTION [None]
  - DIARRHOEA [None]
  - VOMITING [None]
  - EMBOLISM ARTERIAL [None]
  - THROMBOCYTOPENIA [None]
  - PALMAR-PLANTAR ERYTHRODYSAESTHESIA SYNDROME [None]
  - NEUROPATHY PERIPHERAL [None]
  - NAUSEA [None]
  - PULMONARY EMBOLISM [None]
  - NEUTROPENIA [None]
  - DIABETES MELLITUS [None]
  - FATIGUE [None]
  - FEBRILE NEUTROPENIA [None]
